FAERS Safety Report 19683864 (Version 1)
Quarter: 2021Q3

REPORT INFORMATION
  Report Type: Spontaneous
  Country: CN (occurrence: CN)
  Receive Date: 20210810
  Receipt Date: 20210810
  Transmission Date: 20211014
  Serious: Yes (Other)
  Sender: FDA-Public Use
  Company Number: CN-009507513-2108CHN001293

PATIENT
  Age: 59 Year
  Sex: Male
  Weight: 59 kg

DRUGS (2)
  1. SODIUM CHLORIDE. [Concomitant]
     Active Substance: SODIUM CHLORIDE
     Dosage: 100 MILLILITER, QD
  2. INVANZ [Suspect]
     Active Substance: ERTAPENEM SODIUM
     Indication: PNEUMONIA
     Dosage: 1 G, QD
     Route: 041
     Dates: start: 20210701, end: 20210704

REACTIONS (2)
  - Dementia [Recovered/Resolved]
  - Disorganised speech [Recovered/Resolved]

NARRATIVE: CASE EVENT DATE: 20210704
